FAERS Safety Report 10774633 (Version 4)
Quarter: 2016Q3

REPORT INFORMATION
  Report Type: Spontaneous
  Country: US (occurrence: US)
  Receive Date: 20150209
  Receipt Date: 20160803
  Transmission Date: 20161109
  Serious: Yes (Other)
  Sender: FDA-Public Use
  Company Number: US-ASTRAZENECA-2015SE12185

PATIENT
  Age: 19025 Day
  Sex: Female
  Weight: 94.8 kg

DRUGS (34)
  1. AVELOX [Concomitant]
     Active Substance: MOXIFLOXACIN HYDROCHLORIDE
     Dosage: 400.0MG UNKNOWN
     Dates: start: 20080609
  2. BYETTA [Suspect]
     Active Substance: EXENATIDE
     Indication: TYPE 2 DIABETES MELLITUS
     Route: 065
     Dates: start: 200808, end: 201307
  3. BYETTA [Suspect]
     Active Substance: EXENATIDE
     Indication: TYPE 2 DIABETES MELLITUS
     Dosage: 5.0UG UNKNOWN
     Route: 065
     Dates: start: 20080828
  4. ASPIRIN. [Concomitant]
     Active Substance: ASPIRIN
     Route: 048
     Dates: start: 20111103
  5. ATENOLOL. [Concomitant]
     Active Substance: ATENOLOL
     Dosage: 50.0MG UNKNOWN
     Route: 048
     Dates: start: 20090523
  6. LISINOPRIL-HYDROCHLOROTHIAZIDE [Concomitant]
     Active Substance: HYDROCHLOROTHIAZIDE\LISINOPRIL
     Dosage: 10-12.5 MG, ONE TABLET DAILY
     Dates: start: 20090523
  7. SIMVASTATIN. [Concomitant]
     Active Substance: SIMVASTATIN
     Route: 048
     Dates: start: 20090523
  8. TYLENOL WITH CODEINE [Concomitant]
     Active Substance: ACETAMINOPHEN\CODEINE PHOSPHATE
     Dosage: 30 MG/ 325 MG, EVERY FOUR HOURS
     Route: 048
     Dates: start: 20111104
  9. CALCIUM CARBONATE. [Concomitant]
     Active Substance: CALCIUM CARBONATE
     Route: 048
     Dates: start: 20111107
  10. ATENOLOL/CHLORTHAL [Concomitant]
     Dosage: 50/25
     Dates: start: 20050113
  11. FAMOTIDINE. [Concomitant]
     Active Substance: FAMOTIDINE
     Dosage: 20.0MG UNKNOWN
  12. VITAMIN B12 [Concomitant]
     Active Substance: CYANOCOBALAMIN
     Dosage: 1000.0UG UNKNOWN
     Route: 048
     Dates: start: 20111104
  13. PERCOCET [Concomitant]
     Active Substance: ACETAMINOPHEN\OXYCODONE HYDROCHLORIDE
     Dosage: 5 MG/325 MG, ONE-TWO TABLETS , EVERY GOUR HOURS
     Route: 048
     Dates: start: 20050417
  14. HYDROCHLOROTHIAZIDE. [Concomitant]
     Active Substance: HYDROCHLOROTHIAZIDE
     Route: 048
     Dates: start: 20111108
  15. LEVOXYL/LEVOTHYROXINE [Concomitant]
     Dosage: 137.0UG UNKNOWN
     Dates: start: 20111207
  16. VICTOZA [Concomitant]
     Active Substance: LIRAGLUTIDE
     Dosage: 18 MG/3 ML
     Dates: start: 20130730
  17. LOVAZA [Concomitant]
     Active Substance: OMEGA-3-ACID ETHYL ESTERS
     Dosage: 1.0G UNKNOWN
     Dates: start: 20130930
  18. ATORVASTATIN [Concomitant]
     Active Substance: ATORVASTATIN
     Dosage: 10.0MG UNKNOWN
     Route: 048
  19. NAPROXEN. [Concomitant]
     Active Substance: NAPROXEN
  20. CIPRO [Concomitant]
     Active Substance: CIPROFLOXACIN HYDROCHLORIDE
     Route: 048
     Dates: start: 20080408
  21. ZOFRAN [Concomitant]
     Active Substance: ONDANSETRON HYDROCHLORIDE
     Dosage: 4.0MG UNKNOWN
     Dates: start: 20111104
  22. CLOTRIMAZOLE. [Concomitant]
     Active Substance: CLOTRIMAZOLE
     Route: 048
     Dates: start: 20111106
  23. PHENTERMINE. [Concomitant]
     Active Substance: PHENTERMINE
     Dosage: 37.5MG UNKNOWN
     Dates: start: 20130823
  24. METFORMIN HYDROCHLORIDE. [Concomitant]
     Active Substance: METFORMIN HYDROCHLORIDE
     Route: 048
     Dates: start: 20090831
  25. KLOR-CON [Concomitant]
     Active Substance: POTASSIUM CHLORIDE
     Dosage: 25.0MEQ UNKNOWN
     Route: 048
     Dates: start: 20050113
  26. LEVAQUIN [Concomitant]
     Active Substance: LEVOFLOXACIN
     Dosage: 500.0MG UNKNOWN
     Dates: start: 20050204
  27. CLARITHROMYCIN. [Concomitant]
     Active Substance: CLARITHROMYCIN
     Dosage: 500.0MG UNKNOWN
     Dates: start: 20070514
  28. DOCUSATE SODIUM. [Concomitant]
     Active Substance: DOCUSATE SODIUM
     Route: 048
     Dates: start: 20111110
  29. LISINOPRIL. [Concomitant]
     Active Substance: LISINOPRIL
     Route: 048
     Dates: start: 20111107
  30. BYETTA [Suspect]
     Active Substance: EXENATIDE
     Indication: TYPE 2 DIABETES MELLITUS
     Route: 058
     Dates: start: 20071211
  31. BYETTA [Suspect]
     Active Substance: EXENATIDE
     Indication: TYPE 2 DIABETES MELLITUS
     Dosage: 5.0UG UNKNOWN
     Route: 065
     Dates: start: 20110110
  32. MOTRIN [Concomitant]
     Active Substance: IBUPROFEN
     Route: 048
     Dates: start: 20110411
  33. DILAUDID [Concomitant]
     Active Substance: HYDROMORPHONE HYDROCHLORIDE
     Route: 048
     Dates: start: 20110411
  34. MAGNESIUM OXIDE. [Concomitant]
     Active Substance: MAGNESIUM OXIDE
     Route: 048
     Dates: start: 20111110

REACTIONS (12)
  - Procedural pain [Unknown]
  - Vomiting [Unknown]
  - Thyroid cancer metastatic [Unknown]
  - Goitre [Unknown]
  - Autoimmune thyroiditis [Unknown]
  - Nephrolithiasis [Unknown]
  - Localised oedema [Unknown]
  - Erythema [Unknown]
  - Regurgitation [Unknown]
  - Post procedural oedema [Unknown]
  - Metastases to lymph nodes [Unknown]
  - Nausea [Unknown]

NARRATIVE: CASE EVENT DATE: 20110922
